FAERS Safety Report 11417586 (Version 2)
Quarter: 2016Q1

REPORT INFORMATION
  Report Type: Spontaneous
  Country: US (occurrence: US)
  Receive Date: 20150825
  Receipt Date: 20160217
  Transmission Date: 20160525
  Serious: No
  Sender: FDA-Public Use
  Company Number: US-TARO-2015TAR00076

PATIENT
  Age: 68 Year
  Sex: Female
  Weight: 70.3 kg

DRUGS (16)
  1. Z-PACK [Concomitant]
     Active Substance: AZITHROMYCIN DIHYDRATE
     Dosage: UNK
     Dates: start: 2014
  2. CHROMIUM [Concomitant]
     Active Substance: CHROMIC CHLORIDE\CHROMIUM
  3. D-COMPLEX [Concomitant]
  4. KELP [Concomitant]
     Active Substance: KELP
  5. VITAMIN D3 [Concomitant]
     Active Substance: CHOLECALCIFEROL
  6. VITAMIN B COMPLEX [Concomitant]
     Active Substance: CYANOCOBALAMIN\DEXPANTHENOL\NIACINAMIDE\PYRIDOXINE HYDROCHLORIDE\RIBOFLAVIN 5^-PHOSPHATE SODIUM\THIAMINE HYDROCHLORIDE\VITAMIN B COMPLEX
  7. B 12 DROPS [Concomitant]
  8. GREEN TEA FAT BURNER [Concomitant]
  9. DESOXIMETASONE OINTMENT USP 0.05% [Suspect]
     Active Substance: DESOXIMETASONE
     Indication: INFLAMMATION
     Dosage: UNK, TWICE
     Route: 061
     Dates: start: 20150116, end: 20150117
  10. POTASSIUM [Concomitant]
     Active Substance: POTASSIUM
  11. SUPER ENZYMES [Concomitant]
  12. MULTIVITAMINS [Concomitant]
     Active Substance: VITAMINS
  13. CLOBETASOL OINTMENT [Suspect]
     Active Substance: CLOBETASOL
     Indication: DERMATITIS CONTACT
     Dosage: UNK
     Dates: start: 2014
  14. MAGNESIUM [Concomitant]
     Active Substance: MAGNESIUM
  15. VITAMIN E [Concomitant]
     Active Substance: .ALPHA.-TOCOPHEROL
  16. COENZYME Q10 [Concomitant]
     Active Substance: UBIDECARENONE

REACTIONS (8)
  - Skin exfoliation [Not Recovered/Not Resolved]
  - Scab [Not Recovered/Not Resolved]
  - Erythema [Not Recovered/Not Resolved]
  - Skin fissures [Unknown]
  - Skin discolouration [Not Recovered/Not Resolved]
  - Skin hypertrophy [Not Recovered/Not Resolved]
  - Pruritus [Recovered/Resolved]
  - Tenderness [Not Recovered/Not Resolved]

NARRATIVE: CASE EVENT DATE: 20150116
